FAERS Safety Report 17285716 (Version 1)
Quarter: 2020Q1

REPORT INFORMATION
  Report Type: Spontaneous
  Country: US (occurrence: US)
  Receive Date: 20200118
  Receipt Date: 20200118
  Transmission Date: 20200409
  Serious: Yes (Life-Threatening, Hospitalization, Other)
  Sender: FDA-Public Use
  Company Number: US-DRREDDYS-USA/USA/20/0118585

PATIENT
  Age: 79 Year
  Sex: Female

DRUGS (2)
  1. ATORVASTATIN [Suspect]
     Active Substance: ATORVASTATIN
     Indication: CARDIAC DISORDER
  2. ATORVASTATIN [Suspect]
     Active Substance: ATORVASTATIN

REACTIONS (6)
  - Respiratory failure [Recovering/Resolving]
  - Fluid overload [Recovering/Resolving]
  - Muscle atrophy [Recovering/Resolving]
  - Klebsiella infection [Recovering/Resolving]
  - Rhabdomyolysis [Recovering/Resolving]
  - Myopathy [Recovering/Resolving]
